FAERS Safety Report 24371976 (Version 1)
Quarter: 2024Q3

REPORT INFORMATION
  Report Type: Spontaneous
  Country: US (occurrence: None)
  Receive Date: 20240926
  Receipt Date: 20240926
  Transmission Date: 20241017
  Serious: Yes (Death, Life-Threatening, Hospitalization)
  Sender: Public
  Company Number: None

PATIENT
  Age: 65 Year
  Sex: Female
  Weight: 79.5 kg

DRUGS (1)
  1. YESCARTA [Suspect]
     Active Substance: AXICABTAGENE CILOLEUCEL
     Indication: Diffuse large B-cell lymphoma
     Dates: start: 20240830

REACTIONS (8)
  - Immune effector cell-associated neurotoxicity syndrome [None]
  - Bacteraemia [None]
  - Herpes simplex [None]
  - Haemophagocytic lymphohistiocytosis [None]
  - Hepatic failure [None]
  - Gastrointestinal haemorrhage [None]
  - General physical health deterioration [None]
  - Multiple organ dysfunction syndrome [None]

NARRATIVE: CASE EVENT DATE: 20240904
